FAERS Safety Report 20627964 (Version 1)
Quarter: 2022Q1

REPORT INFORMATION
  Report Type: Spontaneous
  Country: US (occurrence: None)
  Receive Date: 20220323
  Receipt Date: 20220323
  Transmission Date: 20220423
  Serious: Yes (Other)
  Sender: FDA-Public Use
  Company Number: None

PATIENT
  Age: 65 Year
  Sex: Male
  Weight: 76.5 kg

DRUGS (12)
  1. MIRAPEX ER [Suspect]
     Active Substance: PRAMIPEXOLE DIHYDROCHLORIDE
     Indication: Parkinson^s disease
     Dosage: OTHER QUANTITY : 1 TABLET(S);?
     Route: 048
     Dates: start: 20141105, end: 20190404
  2. TRAMADOL [Concomitant]
     Active Substance: TRAMADOL
  3. ULTRAM [Concomitant]
  4. AZILECT PROLIA [Concomitant]
  5. ZOFRAN [Concomitant]
     Active Substance: ONDANSETRON HYDROCHLORIDE
  6. NOURIANZ [Concomitant]
     Active Substance: ISTRADEFYLLINE
  7. AVODART [Concomitant]
     Active Substance: DUTASTERIDE
  8. SINEMET [Concomitant]
     Active Substance: CARBIDOPA\LEVODOPA
  9. WELLBUTRIN [Concomitant]
  10. multivitamin [Concomitant]
  11. ERGOCALCIFEROL [Concomitant]
     Active Substance: ERGOCALCIFEROL
  12. VITAMIN D2 [Concomitant]
     Active Substance: ERGOCALCIFEROL

REACTIONS (1)
  - Spinal disorder [None]

NARRATIVE: CASE EVENT DATE: 20180502
